FAERS Safety Report 18499969 (Version 4)
Quarter: 2021Q1

REPORT INFORMATION
  Report Type: Report from Study
  Country: JP (occurrence: JP)
  Receive Date: 20201112
  Receipt Date: 20210317
  Transmission Date: 20210419
  Serious: Yes (Other)
  Sender: FDA-Public Use
  Company Number: JP-CELLTRION INC.-2019JP027532

PATIENT

DRUGS (14)
  1. INFLIXIMAB BS FOR I.V. INFUSION100 MG [NK] [Suspect]
     Active Substance: INFLIXIMAB
     Dosage: 300 MG, QD (PER DAY OF ADMINISTRATION)
     Route: 041
     Dates: start: 20191226, end: 20191226
  2. METHOTREXATE. [Suspect]
     Active Substance: METHOTREXATE
     Indication: RHEUMATOID ARTHRITIS
     Dosage: 6 MILLIGRAM, WEEKLY
     Route: 065
  3. METHOTREXATE. [Suspect]
     Active Substance: METHOTREXATE
     Dosage: 4 MILLIGRAM, WEEKLY
     Route: 065
  4. VFEND [Concomitant]
     Active Substance: VORICONAZOLE
     Indication: SINUSITIS
     Dosage: UNK
     Dates: start: 20171109, end: 20190529
  5. INFLIXIMAB BS FOR I.V. INFUSION100 MG [NK] [Suspect]
     Active Substance: INFLIXIMAB
     Dosage: 300 MG, QD (PER DAY OF ADMINISTRATION)
     Route: 041
     Dates: start: 20190808, end: 20190808
  6. BUCILLAMINE [Concomitant]
     Active Substance: BUCILLAMINE
     Indication: RHEUMATOID ARTHRITIS
     Dosage: UNK
     Dates: start: 20150803
  7. PERIACTIN [Concomitant]
     Active Substance: CYPROHEPTADINE HYDROCHLORIDE
     Dosage: UNK
     Dates: start: 20110404
  8. KLARICID [CLARITHROMYCIN] [Concomitant]
     Active Substance: CLARITHROMYCIN
     Dosage: UNK
     Dates: start: 20181227
  9. REBAMIPIDE [Concomitant]
     Active Substance: REBAMIPIDE
     Indication: PROPHYLAXIS
     Dosage: UNK
     Dates: start: 20190426, end: 20190516
  10. FOLIAMIN [FOLIC ACID] [Concomitant]
     Dosage: UNK
     Dates: start: 20190912
  11. INFLIXIMAB BS FOR I.V. INFUSION100 MG [NK] [Suspect]
     Active Substance: INFLIXIMAB
     Dosage: 300 MG, QD (PER DAY OF ADMINISTRATION)
     Route: 041
     Dates: start: 20190530, end: 20190530
  12. ALFACALCIDOL [Concomitant]
     Active Substance: ALFACALCIDOL
     Indication: VITAMIN D DEFICIENCY
     Dosage: UNK
     Dates: start: 20190426
  13. INFLIXIMAB BS FOR I.V. INFUSION100 MG [NK] [Suspect]
     Active Substance: INFLIXIMAB
     Indication: RHEUMATOID ARTHRITIS
     Dosage: 300 MG, QD (PER DAY OF ADMINISTRATION)
     Route: 041
     Dates: start: 20190322, end: 20190322
  14. INFLIXIMAB BS FOR I.V. INFUSION100 MG [NK] [Suspect]
     Active Substance: INFLIXIMAB
     Dosage: 300 MG, QD (PER DAY OF ADMINISTRATION)
     Route: 041
     Dates: start: 20191121, end: 20191121

REACTIONS (9)
  - Aspergillus infection [Recovered/Resolved]
  - Somnolence [Unknown]
  - Muscle spasms [Recovering/Resolving]
  - Chillblains [Recovered/Resolved]
  - Pyogenic granuloma [Recovering/Resolving]
  - Cough [Recovered/Resolved]
  - Paronychia [Recovering/Resolving]
  - Off label use [Unknown]
  - White blood cell count decreased [Recovered/Resolved]

NARRATIVE: CASE EVENT DATE: 20190410
